FAERS Safety Report 5035443-9 (Version None)
Quarter: 2006Q2

REPORT INFORMATION
  Report Type: 
  Country: None (occurrence: None)
  Receive Date: 20060525
  Receipt Date: 20060424
  Transmission Date: 20061013
  Serious: No
  Sender: FDA-Public Use
  Company Number: S06-USA-01622-01

PATIENT
  Age: 45 Year
  Sex: Male

DRUGS (2)
  1. CAMPRAL [Suspect]
     Indication: ALCOHOLISM
  2. NARCOTIC (NOS) [Concomitant]

REACTIONS (1)
  - ABDOMINAL PAIN [None]
